FAERS Safety Report 24372608 (Version 2)
Quarter: 2024Q4

REPORT INFORMATION
  Report Type: Spontaneous
  Country: US (occurrence: US)
  Receive Date: 20240927
  Receipt Date: 20241118
  Transmission Date: 20250115
  Serious: Yes (Death, Hospitalization)
  Sender: PFIZER
  Company Number: US-SEATTLE GENETICS-2018SGN01707

PATIENT
  Age: 73 Year
  Sex: Male

DRUGS (7)
  1. ADCETRIS [Suspect]
     Active Substance: BRENTUXIMAB VEDOTIN
     Indication: Hodgkin^s disease
     Dosage: 1.2 MG/KG, CYCLIC (1 DOSE)
     Dates: start: 20180607
  2. DACARBAZINE [Suspect]
     Active Substance: DACARBAZINE
     Indication: Hodgkin^s disease
     Dosage: UNK
     Dates: start: 20180607
  3. DOXORUBICIN HYDROCHLORIDE [Suspect]
     Active Substance: DOXORUBICIN HYDROCHLORIDE
     Indication: Hodgkin^s disease
     Dosage: UNK
     Route: 065
     Dates: start: 20180607
  4. VINBLASTINE [Suspect]
     Active Substance: VINBLASTINE
     Indication: Hodgkin^s disease
     Dosage: UNK
     Dates: start: 20180607
  5. CELLCEPT [Concomitant]
     Active Substance: MYCOPHENOLATE MOFETIL
     Indication: Immunosuppressant drug therapy
     Dosage: UNK
  6. PREDNISOLONE [Concomitant]
     Active Substance: PREDNISOLONE
     Indication: Immunosuppressant drug therapy
     Dosage: UNK
  7. ADALIMUMAB [Concomitant]
     Active Substance: ADALIMUMAB
     Indication: Immunosuppressant drug therapy
     Dosage: UNK

REACTIONS (7)
  - Sepsis [Fatal]
  - Neutropenia [Unknown]
  - Pyrexia [Unknown]
  - Cough [Unknown]
  - Diarrhoea [Unknown]
  - Haemodynamic instability [Unknown]
  - Off label use [Unknown]

NARRATIVE: CASE EVENT DATE: 20180607
